FAERS Safety Report 23271836 (Version 1)
Quarter: 2023Q4

REPORT INFORMATION
  Report Type: Spontaneous
  Country: JP (occurrence: JP)
  Receive Date: 20231207
  Receipt Date: 20231207
  Transmission Date: 20240110
  Serious: Yes (Hospitalization, Other)
  Sender: FDA-Public Use
  Company Number: JP-OTSUKA-2023_027970

PATIENT
  Age: 2 Year
  Sex: Male

DRUGS (1)
  1. REXULTI [Suspect]
     Active Substance: BREXPIPRAZOLE
     Indication: Product used for unknown indication
     Dosage: 6 MG/DAY
     Route: 048

REACTIONS (2)
  - Arrhythmia [Recovered/Resolved]
  - Accidental exposure to product by child [Recovered/Resolved]
